APPROVED DRUG PRODUCT: BACLOFEN
Active Ingredient: BACLOFEN
Strength: 20MG
Dosage Form/Route: TABLET;ORAL
Application: A090334 | Product #002
Applicant: SOMERSET THERAPEUTICS LLC
Approved: Feb 18, 2010 | RLD: No | RS: No | Type: DISCN